FAERS Safety Report 18851766 (Version 1)
Quarter: 2021Q1

REPORT INFORMATION
  Report Type: Spontaneous
  Country: US (occurrence: US)
  Receive Date: 20210205
  Receipt Date: 20210205
  Transmission Date: 20210420
  Serious: Yes (Hospitalization)
  Sender: FDA-Public Use
  Company Number: None

PATIENT
  Age: 82 Year
  Sex: Male
  Weight: 81 kg

DRUGS (12)
  1. METFORMIN [Concomitant]
     Active Substance: METFORMIN HYDROCHLORIDE
  2. METOPROLOL SUCCINATE. [Concomitant]
     Active Substance: METOPROLOL SUCCINATE
  3. OMEPRAZOLE. [Concomitant]
     Active Substance: OMEPRAZOLE
  4. VENTOLIN [Concomitant]
     Active Substance: ALBUTEROL SULFATE
  5. LISINOPRIL. [Concomitant]
     Active Substance: LISINOPRIL
  6. CLOPIDOGREL [Concomitant]
     Active Substance: CLOPIDOGREL BISULFATE
  7. WIXELA INHUB [Concomitant]
     Active Substance: FLUTICASONE PROPIONATE\SALMETEROL XINAFOATE
  8. ATORVASTATIN [Concomitant]
     Active Substance: ATORVASTATIN
  9. KEFLEX [Concomitant]
     Active Substance: CEPHALEXIN
  10. BAMLANIVIMAB. [Suspect]
     Active Substance: BAMLANIVIMAB
     Indication: COVID-19
     Dosage: ?          OTHER FREQUENCY:ONCE;?
     Route: 041
     Dates: start: 20210202, end: 20210202
  11. ASPIRIN. [Concomitant]
     Active Substance: ASPIRIN
  12. FINASTERIDE. [Concomitant]
     Active Substance: FINASTERIDE

REACTIONS (10)
  - Heart rate increased [None]
  - Fatigue [None]
  - Livedo reticularis [None]
  - Diarrhoea [None]
  - Pyrexia [None]
  - Chills [None]
  - Dyspnoea [None]
  - Headache [None]
  - Nasal congestion [None]
  - Cough [None]

NARRATIVE: CASE EVENT DATE: 20210202
